FAERS Safety Report 20062422 (Version 1)
Quarter: 2021Q4

REPORT INFORMATION
  Report Type: Spontaneous
  Country: US (occurrence: None)
  Receive Date: 20211111
  Receipt Date: 20211111
  Transmission Date: 20220303
  Serious: Yes (Hospitalization)
  Sender: FDA-Public Use
  Company Number: None

PATIENT
  Age: 69 Year
  Sex: Male
  Weight: 77.7 kg

DRUGS (11)
  1. LYNPARZA [Suspect]
     Active Substance: OLAPARIB
     Indication: Mesothelioma malignant
     Dosage: FREQUENCY : DAILY;?
     Route: 048
     Dates: start: 20210616, end: 20211104
  2. AMLODIPINE [Concomitant]
     Active Substance: AMLODIPINE BESYLATE
     Dates: start: 20210402
  3. CALCIUM CITRATE\CHOLECALCIFEROL [Concomitant]
     Active Substance: CALCIUM CITRATE\CHOLECALCIFEROL
     Dates: start: 20210402
  4. FAMOTIDINE [Concomitant]
     Active Substance: FAMOTIDINE
     Dates: start: 20210401
  5. DRONABINOL [Concomitant]
     Active Substance: DRONABINOL
     Dates: start: 20210929
  6. FUROSEMIDE [Concomitant]
     Active Substance: FUROSEMIDE
     Dates: start: 20210401
  7. LEVOTHYROXINE [Concomitant]
     Active Substance: LEVOTHYROXINE
     Dates: start: 20200305
  8. LORAZEPAM [Concomitant]
     Active Substance: LORAZEPAM
     Dates: start: 20211022
  9. METOCLOPRAMIDE [Concomitant]
     Active Substance: METOCLOPRAMIDE
     Dates: start: 20210607
  10. LIDOCAINE [Concomitant]
     Active Substance: LIDOCAINE
     Dates: start: 20210811
  11. KLOR-CON [Concomitant]
     Active Substance: POTASSIUM CHLORIDE
     Dates: start: 20211015

REACTIONS (4)
  - Pulmonary embolism [None]
  - Pneumonia [None]
  - Pneumothorax [None]
  - Pleural effusion [None]

NARRATIVE: CASE EVENT DATE: 20211108
